FAERS Safety Report 4322308-0 (Version None)
Quarter: 2004Q1

REPORT INFORMATION
  Report Type: 
  Country: None (occurrence: None)
  Receive Date: 20040323
  Receipt Date: 20040323
  Transmission Date: 20041129
  Serious: No
  Sender: FDA-Public Use
  Company Number: None

PATIENT
  Age: 69 Year

DRUGS (1)
  1. INFED [Suspect]
     Dosage: 1 DO
     Dates: start: 20031114

REACTIONS (1)
  - BACK PAIN [None]
